FAERS Safety Report 17471379 (Version 1)
Quarter: 2020Q1

REPORT INFORMATION
  Report Type: Report from Study
  Country: None (occurrence: IT)
  Receive Date: 20200228
  Receipt Date: 20200228
  Transmission Date: 20200409
  Serious: Yes (Other)
  Sender: FDA-Public Use
  Company Number: IT-ABBVIE-20K-083-3295379-00

PATIENT
  Age: 72 Year
  Sex: Male

DRUGS (1)
  1. DUODOPA [Suspect]
     Active Substance: CARBIDOPA\LEVODOPA
     Indication: PARKINSON^S DISEASE
     Dosage: MD: 10,5+3 ??CR: 3,5 (12H)??ED: 2
     Route: 050
     Dates: start: 20200115

REACTIONS (2)
  - Urinary tract obstruction [Unknown]
  - Benign prostatic hyperplasia [Unknown]

NARRATIVE: CASE EVENT DATE: 202001
